FAERS Safety Report 22028325 (Version 1)
Quarter: 2023Q1

REPORT INFORMATION
  Report Type: Spontaneous
  Country: US (occurrence: None)
  Receive Date: 20230223
  Receipt Date: 20230223
  Transmission Date: 20230417
  Serious: No
  Sender: FDA-Public Use
  Company Number: US-ROCHE-3103273

PATIENT
  Sex: Male

DRUGS (2)
  1. NUTROPIN [Suspect]
     Active Substance: SOMATROPIN
     Indication: Short stature
     Dosage: NUTROPIN AQ NUSPIN 10 PEN?STRENGTH:10MG/2ML
     Route: 058
     Dates: start: 201911
  2. NUTROPIN [Suspect]
     Active Substance: SOMATROPIN

REACTIONS (1)
  - Anxiety [Unknown]
